FAERS Safety Report 14910674 (Version 2)
Quarter: 2018Q2

REPORT INFORMATION
  Report Type: Not Available
  Country: US (occurrence: US)
  Receive Date: 20180517
  Receipt Date: 20180620
  Transmission Date: 20180711
  Serious: No
  Sender: FDA-Public Use
  Company Number: US-NEUROCRINE BIOSCIENCES INC.-2018NBI01414

PATIENT
  Sex: Male
  Weight: 84.44 kg

DRUGS (10)
  1. VITAMIN D3 [Concomitant]
     Active Substance: CHOLECALCIFEROL
     Indication: DEPRESSION
     Route: 048
     Dates: start: 20170327
  2. GABAPENTIN. [Concomitant]
     Active Substance: GABAPENTIN
     Indication: ANXIETY
     Route: 048
     Dates: start: 20170327
  3. SAPHRIS [Concomitant]
     Active Substance: ASENAPINE MALEATE
     Indication: SCHIZOPHRENIA
     Dosage: AT BEDTIME
     Route: 048
     Dates: start: 20150813
  4. INGREZZA [Suspect]
     Active Substance: VALBENAZINE
     Indication: TARDIVE DYSKINESIA
     Route: 048
     Dates: start: 20170928, end: 20171004
  5. BENZTROPINE. [Concomitant]
     Active Substance: BENZTROPINE
     Indication: DYSKINESIA
     Route: 048
     Dates: start: 20150514
  6. LEXAPRO [Concomitant]
     Active Substance: ESCITALOPRAM OXALATE
     Indication: DEPRESSION
     Route: 048
  7. INGREZZA [Suspect]
     Active Substance: VALBENAZINE
     Route: 048
     Dates: start: 20171005, end: 20180430
  8. BUSPIRONE [Concomitant]
     Active Substance: BUSPIRONE HYDROCHLORIDE
     Indication: ANXIETY
     Route: 048
     Dates: start: 20161102
  9. ALEVE [Concomitant]
     Active Substance: NAPROXEN SODIUM
     Indication: PAIN
  10. HYDROXYZINE [Concomitant]
     Active Substance: HYDROXYZINE HYDROCHLORIDE
     Indication: ANXIETY
     Dosage: 10 MG 1-2 BID; AS NEEDED
     Route: 048
     Dates: start: 20151112

REACTIONS (15)
  - Palpitations [Unknown]
  - Headache [Unknown]
  - Skin ulcer [Unknown]
  - Fatigue [Unknown]
  - Nightmare [Unknown]
  - Drug effect incomplete [None]
  - Disturbance in attention [Unknown]
  - Vomiting [Unknown]
  - Decreased appetite [Unknown]
  - Dizziness [Unknown]
  - Dry mouth [Unknown]
  - Chest pain [Unknown]
  - Restlessness [Unknown]
  - Bowel movement irregularity [Unknown]
  - Malaise [Unknown]
